FAERS Safety Report 5598649-6 (Version None)
Quarter: 2008Q1

REPORT INFORMATION
  Report Type: 
  Country: None (occurrence: None)
  Receive Date: 20080122
  Receipt Date: 20080115
  Transmission Date: 20080703
  Serious: Yes (Other)
  Sender: FDA-Public Use
  Company Number: US-ROCHE-541235

PATIENT
  Age: 77 Year
  Sex: Female

DRUGS (3)
  1. BONIVA [Suspect]
     Indication: OSTEOPOROSIS
     Route: 065
     Dates: end: 20070901
  2. COUMADIN [Concomitant]
  3. DIGOXIN [Concomitant]

REACTIONS (2)
  - BONE DISORDER [None]
  - PAIN IN JAW [None]
